FAERS Safety Report 13160489 (Version 2)
Quarter: 2017Q1

REPORT INFORMATION
  Report Type: Report from Study
  Country: US (occurrence: US)
  Receive Date: 20170128
  Receipt Date: 20170201
  Transmission Date: 20170428
  Serious: Yes (Hospitalization, Other)
  Sender: FDA-Public Use
  Company Number: US-AMGEN-USASL2017011679

PATIENT
  Age: 64 Year
  Sex: Male

DRUGS (15)
  1. ENBREL [Suspect]
     Active Substance: ETANERCEPT
     Dosage: 50 MG, QWK
     Route: 058
     Dates: start: 20170118, end: 20170124
  2. PHENYTOIN. [Concomitant]
     Active Substance: PHENYTOIN
     Route: 065
  3. FISH OIL [Concomitant]
     Active Substance: FISH OIL
     Route: 065
  4. ONDANSETRON [Concomitant]
     Active Substance: ONDANSETRON
     Route: 065
  5. ENBREL [Suspect]
     Active Substance: ETANERCEPT
     Indication: RHEUMATOID ARTHRITIS
     Dosage: 50 MG, QWK
     Route: 058
     Dates: end: 201612
  6. PRAVASTATIN. [Concomitant]
     Active Substance: PRAVASTATIN
     Route: 065
  7. AMLODIPINE [Concomitant]
     Active Substance: AMLODIPINE BESYLATE
     Dosage: UNK
     Route: 065
  8. LORAZEPAM. [Concomitant]
     Active Substance: LORAZEPAM
     Route: 065
  9. ESCITALOPRAM [Concomitant]
     Active Substance: ESCITALOPRAM OXALATE
     Route: 065
  10. METHYLPREDNISOLONE. [Concomitant]
     Active Substance: METHYLPREDNISOLONE
     Route: 065
  11. LOSARTAN. [Concomitant]
     Active Substance: LOSARTAN
     Route: 065
  12. VITAMIN D3 [Concomitant]
     Active Substance: CHOLECALCIFEROL
     Route: 065
  13. OXYCODONE [Concomitant]
     Active Substance: OXYCODONE
     Route: 065
  14. SENEXON [Concomitant]
     Active Substance: SENNOSIDES A AND B
     Route: 065
  15. CELECOXIB. [Concomitant]
     Active Substance: CELECOXIB
     Route: 065

REACTIONS (4)
  - Rash erythematous [Recovering/Resolving]
  - Peripheral swelling [Recovering/Resolving]
  - Hip arthroplasty [Recovering/Resolving]
  - Pruritus generalised [Unknown]

NARRATIVE: CASE EVENT DATE: 20170102
